FAERS Safety Report 23384318 (Version 1)
Quarter: 2024Q1

REPORT INFORMATION
  Report Type: Report from Study
  Country: US (occurrence: US)
  Receive Date: 20240109
  Receipt Date: 20240109
  Transmission Date: 20240410
  Serious: Yes (Hospitalization)
  Sender: FDA-Public Use
  Company Number: US-Eisai-EC-2024-156671

PATIENT
  Age: 60 Year
  Sex: Female
  Weight: 116 kg

DRUGS (11)
  1. LENVIMA [Suspect]
     Active Substance: LENVATINIB
     Indication: Endometrial cancer
     Route: 048
     Dates: start: 20230123, end: 20230418
  2. LENVIMA [Suspect]
     Active Substance: LENVATINIB
     Route: 048
     Dates: end: 202309
  3. ASPIRIN [Concomitant]
     Active Substance: ASPIRIN
  4. ACETAMINOPHEN\HYDROCODONE [Concomitant]
     Active Substance: ACETAMINOPHEN\HYDROCODONE
  5. VITAMIN B12 [Concomitant]
     Active Substance: CYANOCOBALAMIN
  6. CELEBREX [Concomitant]
     Active Substance: CELECOXIB
  7. VITAMIN C [Concomitant]
     Active Substance: ASCORBIC ACID
  8. COLLAGEN [Concomitant]
     Active Substance: COLLAGEN
  9. GLUCOSAMINE [Concomitant]
     Active Substance: GLUCOSAMINE
  10. LISINOPRIL [Concomitant]
     Active Substance: LISINOPRIL
  11. NORCO [Concomitant]
     Active Substance: ACETAMINOPHEN\HYDROCODONE BITARTRATE

REACTIONS (1)
  - Blister [Not Recovered/Not Resolved]

NARRATIVE: CASE EVENT DATE: 20230913
